FAERS Safety Report 8885473 (Version 2)
Quarter: 2012Q4

REPORT INFORMATION
  Report Type: 
  Country: US (occurrence: US)
  Receive Date: 20121101
  Receipt Date: 20121128
  Transmission Date: 20130627
  Serious: Yes (Hospitalization)
  Sender: FDA-Public Use
  Company Number: US-PFIZER INC-2012270232

PATIENT
  Sex: Male

DRUGS (1)
  1. SUTENT [Suspect]
     Dosage: UNK

REACTIONS (4)
  - Anal fissure [Unknown]
  - Infection [Unknown]
  - Proctalgia [Recovering/Resolving]
  - Decreased appetite [Recovering/Resolving]
